FAERS Safety Report 19111904 (Version 1)
Quarter: 2021Q2

REPORT INFORMATION
  Report Type: Spontaneous
  Country: US (occurrence: US)
  Receive Date: 20210408
  Receipt Date: 20210408
  Transmission Date: 20210717
  Serious: Yes (Hospitalization)
  Sender: FDA-Public Use
  Company Number: US-SYMOGEN - AB-2021000005

PATIENT
  Sex: Male

DRUGS (1)
  1. LEUKINE [Suspect]
     Active Substance: SARGRAMOSTIM
     Indication: PRODUCT USED FOR UNKNOWN INDICATION
     Dosage: 150 MCG (0.6 ML) EVERY 24 HRS DAYS 6???12 EVERY 21 DAYS
     Route: 042

REACTIONS (1)
  - Hospitalisation [Unknown]
